FAERS Safety Report 18126671 (Version 1)
Quarter: 2020Q3

REPORT INFORMATION
  Report Type: Spontaneous
  Country: US (occurrence: US)
  Receive Date: 20200809
  Receipt Date: 20200809
  Transmission Date: 20201103
  Serious: No
  Sender: FDA-Public Use
  Company Number: US-APOTEX-2020AP014093

PATIENT
  Sex: Female

DRUGS (1)
  1. ZIPRASIDONE. [Suspect]
     Active Substance: ZIPRASIDONE
     Indication: ANXIETY
     Dosage: UNK (SMALL DOSE, MINIMUM DOSE)
     Route: 065
     Dates: start: 202007

REACTIONS (1)
  - Trichorrhexis [Unknown]

NARRATIVE: CASE EVENT DATE: 202007
